FAERS Safety Report 12857226 (Version 1)
Quarter: 2016Q4

REPORT INFORMATION
  Report Type: Report from Study
  Country: US (occurrence: US)
  Receive Date: 20161018
  Receipt Date: 20161018
  Transmission Date: 20170207
  Serious: Yes (Hospitalization)
  Sender: FDA-Public Use
  Company Number: US-ROCHE-1835328

PATIENT
  Sex: Male

DRUGS (4)
  1. COTELLIC [Suspect]
     Active Substance: COBIMETINIB
     Indication: COLON CANCER
     Dosage: 3 PILLS ONCE A DAY
     Route: 048
     Dates: start: 201609
  2. COTELLIC [Suspect]
     Active Substance: COBIMETINIB
     Dosage: 21 DAYS ON AND 7 DAYS OFF
     Route: 048
  3. COTELLIC [Suspect]
     Active Substance: COBIMETINIB
     Dosage: 2 PILLS ONCE A DAY.
     Route: 048
  4. TECENTRIQ [Suspect]
     Active Substance: ATEZOLIZUMAB
     Indication: COLON CANCER
     Route: 065

REACTIONS (6)
  - Off label use [Unknown]
  - Rash [Unknown]
  - Fatigue [Unknown]
  - Skin irritation [Unknown]
  - Mental disorder [Recovered/Resolved]
  - Nausea [Unknown]
